FAERS Safety Report 9795362 (Version 1)
Quarter: 2014Q1

REPORT INFORMATION
  Report Type: Spontaneous
  Country: US (occurrence: US)
  Receive Date: 20140103
  Receipt Date: 20140103
  Transmission Date: 20141002
  Serious: Yes (Other)
  Sender: FDA-Public Use
  Company Number: US-ASTRAZENECA-2013SE93933

PATIENT
  Age: 50 Year
  Sex: Female
  Weight: 77.1 kg

DRUGS (6)
  1. FASLODEX [Suspect]
     Indication: BREAST CANCER FEMALE
     Route: 030
     Dates: start: 201307
  2. TAMOXIFEN [Suspect]
     Indication: BREAST CANCER FEMALE
     Route: 048
     Dates: start: 2007, end: 2008
  3. SYNTHROID [Concomitant]
     Indication: THYROID DISORDER
     Dates: start: 2003
  4. ZOMEDA [Concomitant]
     Indication: BONE DISORDER
     Dosage: MONTHLY
     Route: 042
     Dates: start: 2007
  5. FEMARA [Concomitant]
     Dates: start: 2008, end: 2013
  6. AROMASIN [Concomitant]
     Dates: start: 201302, end: 201307

REACTIONS (12)
  - Bone lesion [Unknown]
  - Arthralgia [Unknown]
  - Sciatica [Unknown]
  - Dysgeusia [Unknown]
  - Insomnia [Unknown]
  - Muscle spasms [Unknown]
  - Pain [Unknown]
  - Pain in extremity [Unknown]
  - Gait disturbance [Unknown]
  - Feeling abnormal [Unknown]
  - Injection site pain [Unknown]
  - Decreased appetite [Unknown]
